FAERS Safety Report 16125397 (Version 1)
Quarter: 2019Q1

REPORT INFORMATION
  Report Type: Spontaneous
  Country: FR (occurrence: FR)
  Receive Date: 20190327
  Receipt Date: 20190327
  Transmission Date: 20190418
  Serious: Yes (Other)
  Sender: FDA-Public Use
  Company Number: FR-BAXTER-2019BAX005567

PATIENT
  Age: 40 Year
  Sex: Female
  Weight: 109 kg

DRUGS (4)
  1. PROPOFOL LIPURO [Suspect]
     Active Substance: PROPOFOL
     Indication: GENERAL ANAESTHESIA
     Dosage: 250 MG AT 10:17 A.M. THEN 50 MG AT 10:18 A.M.
     Route: 040
     Dates: start: 20190214, end: 20190214
  2. SUFENTANIL MYLAN [Suspect]
     Active Substance: SUFENTANIL
     Indication: GENERAL ANAESTHESIA
     Route: 040
     Dates: start: 20190214, end: 20190214
  3. RINGER LACTATE VIAFLO, SOLUTION POUR PERFUSION [Suspect]
     Active Substance: CALCIUM CHLORIDE\POTASSIUM CHLORIDE\SODIUM CHLORIDE\SODIUM LACTATE
     Indication: PRODUCT USED FOR UNKNOWN INDICATION
     Route: 041
     Dates: start: 20190214, end: 20190214
  4. ROCURONIUM B BRAUN [Suspect]
     Active Substance: ROCURONIUM BROMIDE
     Indication: GENERAL ANAESTHESIA
     Route: 040
     Dates: start: 20190214, end: 20190214

REACTIONS (1)
  - Anaphylactic shock [Recovered/Resolved]

NARRATIVE: CASE EVENT DATE: 20190214
